FAERS Safety Report 4659626-2 (Version None)
Quarter: 2005Q2

REPORT INFORMATION
  Report Type: 
  Country: None (occurrence: None)
  Receive Date: 20050411
  Receipt Date: 20040902
  Transmission Date: 20051028
  Serious: Yes (Other)
  Sender: FDA-Public Use
  Company Number: 378183

PATIENT
  Age: 60 Year
  Sex: Male
  Weight: 80.7 kg

DRUGS (8)
  1. FUZEON [Suspect]
     Indication: HIV INFECTION
     Dosage: 90 MG 2 PER DAY
     Dates: start: 20040504
  2. FUZEON [Suspect]
     Indication: HIV INFECTION
     Dosage: 90 MG 2 PER DAY
     Dates: start: 20040504
  3. TRICOR [Concomitant]
  4. GLYBURIDE [Concomitant]
  5. ZIAGEN [Concomitant]
  6. REYATAZ [Concomitant]
  7. GLUCOPHAGE [Concomitant]
  8. CELEBREX [Concomitant]

REACTIONS (26)
  - ADVERSE EVENT [None]
  - BEDRIDDEN [None]
  - BLOOD CHOLESTEROL INCREASED [None]
  - BLOOD GLUCOSE ABNORMAL [None]
  - BLOOD GLUCOSE DECREASED [None]
  - CLUMSINESS [None]
  - CONSTIPATION [None]
  - DEPRESSION [None]
  - DRY MOUTH [None]
  - DRY SKIN [None]
  - FATIGUE [None]
  - FIBROMYALGIA [None]
  - FREQUENT BOWEL MOVEMENTS [None]
  - HYPERGLYCAEMIA [None]
  - INJECTION SITE INDURATION [None]
  - INJECTION SITE INFLAMMATION [None]
  - INJECTION SITE PAIN [None]
  - INJECTION SITE REACTION [None]
  - INSOMNIA [None]
  - MOBILITY DECREASED [None]
  - NERVOUSNESS [None]
  - PAIN IN EXTREMITY [None]
  - PARAPLEGIA [None]
  - T-LYMPHOCYTE COUNT DECREASED [None]
  - VISION BLURRED [None]
  - WEIGHT DECREASED [None]
